FAERS Safety Report 16136608 (Version 1)
Quarter: 2019Q2

REPORT INFORMATION
  Report Type: Other
  Country: GB (occurrence: GB)
  Receive Date: 20190401
  Receipt Date: 20190401
  Transmission Date: 20190711
  Serious: No
  Sender: FDA-Public Use
  Company Number: GB-LUPIN PHARMACEUTICALS INC.-2018-01311

PATIENT
  Age: 82 Year
  Sex: Female
  Weight: 62 kg

DRUGS (10)
  1. CO-AMOXICLAV                       /00756801/ [Concomitant]
     Active Substance: AMOXICILLIN\CLAVULANIC ACID
     Indication: ILL-DEFINED DISORDER
     Dosage: 1 DF, TID
     Route: 065
     Dates: start: 20171122, end: 20171202
  2. TRIMETHOPRIM. [Concomitant]
     Active Substance: TRIMETHOPRIM
     Indication: ILL-DEFINED DISORDER
     Dosage: 1 DF, BID
     Route: 065
     Dates: start: 20171204, end: 20171211
  3. SERTRALINE [Suspect]
     Active Substance: SERTRALINE HYDROCHLORIDE
     Indication: PRODUCT USED FOR UNKNOWN INDICATION
     Dosage: UNK
     Route: 065
     Dates: start: 20180131
  4. OMEPRAZOLE. [Concomitant]
     Active Substance: OMEPRAZOLE
     Indication: ILL-DEFINED DISORDER
     Dosage: TAKE ONE OR TWO DAILY
     Route: 065
     Dates: start: 20170822
  5. MOMETASONE [Concomitant]
     Active Substance: MOMETASONE
     Indication: ILL-DEFINED DISORDER
     Dosage: 1 EACH SIDE, ONCE/DAY INSTEAD OF FLIXONASE ()
     Route: 065
     Dates: start: 20170822
  6. ESTRIOL [Concomitant]
     Active Substance: ESTRIOL
     Indication: ILL-DEFINED DISORDER
     Dosage: APPLY AT NIGHT DAILY FOR 2 WEEKS THEN TWICE A W... ()
     Route: 065
     Dates: start: 20170822
  7. CEFALEXIN [Concomitant]
     Active Substance: CEPHALEXIN
     Indication: ILL-DEFINED DISORDER
     Dosage: 1 DF, QD
     Route: 065
     Dates: start: 20170822
  8. PROPRANOLOL [Concomitant]
     Active Substance: PROPRANOLOL HYDROCHLORIDE
     Indication: ILL-DEFINED DISORDER
     Dosage: TAKE ONE AS NEEDED UP TO 3 TIMES/DAY ()
     Route: 065
     Dates: start: 20170822
  9. BUDESONIDE. [Concomitant]
     Active Substance: BUDESONIDE
     Indication: ILL-DEFINED DISORDER
     Dosage: UNK, BID (INHALE 1 DOSE TWICE DAILY)
     Route: 055
     Dates: start: 20170822
  10. AMLODIPINE [Concomitant]
     Active Substance: AMLODIPINE BESYLATE
     Indication: ILL-DEFINED DISORDER
     Dosage: 1 DF, QD
     Route: 065
     Dates: start: 20170822

REACTIONS (5)
  - Vomiting [Recovered/Resolved]
  - Dizziness [Recovering/Resolving]
  - Insomnia [Unknown]
  - Palpitations [Recovered/Resolved]
  - Retching [Recovered/Resolved]

NARRATIVE: CASE EVENT DATE: 20180202
